FAERS Safety Report 9946112 (Version 1)
Quarter: 2014Q1

REPORT INFORMATION
  Report Type: Spontaneous
  Country: US (occurrence: US)
  Receive Date: 20140303
  Receipt Date: 20140303
  Transmission Date: 20141002
  Serious: No
  Sender: FDA-Public Use
  Company Number: US-AMGEN-USASP2013070441

PATIENT
  Age: 68 Year
  Sex: Female

DRUGS (6)
  1. ENBREL [Suspect]
     Indication: RHEUMATOID ARTHRITIS
     Dosage: 50 MG, QWK
     Route: 058
     Dates: start: 20130923
  2. METHOTREXATE [Concomitant]
     Dosage: 2.5 MG, UNK
  3. FOLIC ACID [Concomitant]
     Dosage: 1 MG, UNK
  4. CARDIAZEM                          /00489701/ [Concomitant]
     Dosage: 360 UNK, UNK
  5. ZIAC                               /01166101/ [Concomitant]
     Dosage: 2.5-6.5 MG, UNK
  6. VITAMIN D3 [Concomitant]
     Dosage: 50000 UNIT, UNK

REACTIONS (3)
  - Injection site urticaria [Unknown]
  - Injection site swelling [Unknown]
  - Injection site erythema [Unknown]
